FAERS Safety Report 16445248 (Version 1)
Quarter: 2019Q2

REPORT INFORMATION
  Report Type: Other
  Country: CA (occurrence: CA)
  Receive Date: 20190618
  Receipt Date: 20190618
  Transmission Date: 20190711
  Serious: Yes (Life-Threatening, Hospitalization)
  Sender: FDA-Public Use
  Company Number: CA-FDC LIMITED-2069318

PATIENT
  Age: 5 Decade
  Sex: Male

DRUGS (10)
  1. ACETAMINOPHEN. [Concomitant]
     Active Substance: ACETAMINOPHEN
     Route: 048
  2. METHADONE [Interacting]
     Active Substance: METHADONE HYDROCHLORIDE
     Route: 048
  3. DALTEPARIN [Concomitant]
     Active Substance: DALTEPARIN
     Route: 058
  4. CLINDAMYCIN. [Concomitant]
     Active Substance: CLINDAMYCIN
     Route: 042
  5. METHOTRIMEPRAZINE [Concomitant]
     Active Substance: LEVOMEPROMAZINE
     Route: 048
  6. FOLIC ACID. [Concomitant]
     Active Substance: FOLIC ACID
     Route: 048
  7. CIPROFLOXACIN. [Suspect]
     Active Substance: CIPROFLOXACIN
     Indication: PNEUMONIA ASPIRATION
     Route: 042
  8. THIAMINE. [Concomitant]
     Active Substance: THIAMINE
     Route: 048
  9. CODEINE [Concomitant]
     Active Substance: CODEINE
     Route: 048
  10. MORPHINE [Concomitant]
     Active Substance: MORPHINE
     Route: 042

REACTIONS (3)
  - Drug interaction [Recovered/Resolved]
  - Respiratory depression [Recovered/Resolved]
  - Toxicity to various agents [Recovered/Resolved]
